FAERS Safety Report 20241076 (Version 2)
Quarter: 2025Q2

REPORT INFORMATION
  Report Type: Spontaneous
  Country: US (occurrence: US)
  Receive Date: 20211228
  Receipt Date: 20250605
  Transmission Date: 20250716
  Serious: Yes (Death, Other)
  Sender: PURDUE
  Company Number: US-PURDUE-USA-2020-0221038

PATIENT
  Age: 25 Year
  Sex: Male

DRUGS (5)
  1. OXYCONTIN [Suspect]
     Active Substance: OXYCODONE HYDROCHLORIDE
     Indication: Product used for unknown indication
     Route: 048
  2. DILAUDID [Suspect]
     Active Substance: HYDROMORPHONE HYDROCHLORIDE
     Indication: Product used for unknown indication
     Route: 048
  3. BUPRENORPHINE [Suspect]
     Active Substance: BUPRENORPHINE
     Indication: Product used for unknown indication
     Route: 062
  4. HYDROCODONE BITARTRATE AND ACETAMINOPHEN [Suspect]
     Active Substance: ACETAMINOPHEN\HYDROCODONE BITARTRATE
     Indication: Product used for unknown indication
     Route: 048
  5. HEROIN [Suspect]
     Active Substance: DIAMORPHINE
     Indication: Product used for unknown indication
     Route: 065

REACTIONS (3)
  - Toxicity to various agents [Fatal]
  - Overdose [Unknown]
  - Drug dependence [Unknown]

NARRATIVE: CASE EVENT DATE: 20160423
